FAERS Safety Report 19260766 (Version 1)
Quarter: 2021Q2

REPORT INFORMATION
  Report Type: Spontaneous
  Country: US (occurrence: US)
  Receive Date: 20210515
  Receipt Date: 20210515
  Transmission Date: 20210717
  Serious: No
  Sender: FDA-Public Use
  Company Number: US-SA-2021SA131586

PATIENT
  Age: 49 Year
  Sex: Female

DRUGS (1)
  1. NASACORT ALLERGY 24HR [Suspect]
     Active Substance: TRIAMCINOLONE ACETONIDE
     Indication: SEASONAL ALLERGY
     Dosage: SPRAY
     Route: 045
     Dates: start: 20210417, end: 20210418

REACTIONS (2)
  - Epistaxis [Recovering/Resolving]
  - Device difficult to use [Unknown]

NARRATIVE: CASE EVENT DATE: 20210418
